FAERS Safety Report 10067393 (Version 2)
Quarter: 2014Q2

REPORT INFORMATION
  Report Type: Spontaneous
  Country: US (occurrence: None)
  Receive Date: 20140407
  Receipt Date: 20140522
  Transmission Date: 20141212
  Serious: Yes (Hospitalization)
  Sender: FDA-Public Use
  Company Number: 2014-US-003817

PATIENT
  Age: 54 Year
  Sex: Female

DRUGS (2)
  1. XYREM [Suspect]
     Indication: INSOMNIA
     Route: 048
     Dates: start: 201303
  2. LEVOTHYROXINE (LEVOTHYROXINE) [Concomitant]

REACTIONS (8)
  - Migraine [None]
  - Hyperthyroidism [None]
  - Basedow^s disease [None]
  - Condition aggravated [None]
  - Mental impairment [None]
  - Hypermetabolism [None]
  - Drug ineffective for unapproved indication [None]
  - Off label use [None]
